FAERS Safety Report 10062046 (Version 1)
Quarter: 2014Q1

REPORT INFORMATION
  Report Type: Spontaneous
  Country: US (occurrence: None)
  Receive Date: 20140312
  Receipt Date: 20140312
  Transmission Date: 20141002
  Serious: Yes (Other)
  Sender: FDA-Public Use
  Company Number: 1000052080

PATIENT
  Age: 43 Year
  Sex: Female

DRUGS (8)
  1. SAVELLA [Suspect]
     Indication: FIBROMYALGIA
     Route: 048
     Dates: start: 20120911, end: 20120912
  2. CITALOPRAM [Concomitant]
  3. PROPRANOLOL [Concomitant]
  4. LISINOPRIL [Concomitant]
  5. LORAZEPAM (LORAZEPAM) (LORAZEPAM) [Concomitant]
  6. IBUPROFEN (IBUPROFEN) (IBUPROFEN) [Concomitant]
  7. FLEXERIL [Concomitant]
  8. MACRODANTIN [Concomitant]

REACTIONS (2)
  - Suicidal ideation [None]
  - Escherichia urinary tract infection [None]
